FAERS Safety Report 6604698-9 (Version None)
Quarter: 2010Q1

REPORT INFORMATION
  Report Type: 
  Country: None (occurrence: None)
  Receive Date: 20100226
  Receipt Date: 20100126
  Transmission Date: 20100710
  Serious: No
  Sender: FDA-Public Use
  Company Number: US-BAYER-201012769NA

PATIENT
  Age: 54 Year
  Sex: Female
  Weight: 73 kg

DRUGS (2)
  1. ULTRAVIST 300 [Suspect]
     Indication: COMPUTERISED TOMOGRAM ABDOMEN
     Dosage: POWER INJECTOR AND WARMER, 2.8 ML/SEC INTO RIGHT ANTECUBITAL
     Route: 042
     Dates: start: 20100119, end: 20100119
  2. ORAL CONTRAST [Concomitant]
     Route: 048
     Dates: start: 20100119, end: 20100119

REACTIONS (1)
  - URTICARIA [None]
